FAERS Safety Report 6634593-0 (Version None)
Quarter: 2010Q1

REPORT INFORMATION
  Report Type: 
  Country: None (occurrence: None)
  Receive Date: 20100315
  Receipt Date: 20100308
  Transmission Date: 20100710
  Serious: Yes (Other)
  Sender: FDA-Public Use
  Company Number: A0849735A

PATIENT
  Age: 57 Year
  Sex: Male

DRUGS (2)
  1. AVANDIA [Suspect]
     Indication: DIABETES MELLITUS
     Dosage: 4MG TWICE PER DAY
     Route: 048
     Dates: start: 20050501, end: 20051201
  2. METFORMIN HCL [Concomitant]
     Dosage: 500MG TWICE PER DAY
     Dates: start: 20050501

REACTIONS (1)
  - CEREBROVASCULAR ACCIDENT [None]
